FAERS Safety Report 8798215 (Version 1)
Quarter: 2012Q4

REPORT INFORMATION
  Report Type: 
  Country: US (occurrence: US)
  Receive Date: 20120920
  Receipt Date: 20120920
  Transmission Date: 20130627
  Serious: Yes (Hospitalization, Other)
  Sender: FDA-Public Use
  Company Number: US-PFIZER INC-2012228274

PATIENT
  Age: 17 Year
  Sex: Female

DRUGS (5)
  1. EFFEXOR [Suspect]
     Dosage: 75 mg, UNK
     Route: 048
     Dates: end: 20120903
  2. EFFEXOR [Suspect]
     Dosage: 37.5 mg, UNK
     Route: 048
     Dates: start: 20120904
  3. BACTRIM [Suspect]
     Indication: LYMPHADENOPATHY
     Dosage: UNK, 2x/day
     Route: 048
     Dates: start: 20120823, end: 20120827
  4. SOLIRIS [Suspect]
     Indication: PAROXYSMAL NOCTURNAL HAEMOGLOBINURIA
     Dosage: 600 mg, weekly for first 4 weeks
     Route: 042
     Dates: start: 2011, end: 2011
  5. SOLIRIS [Suspect]
     Dosage: 900 mg, 2x/week
     Route: 042
     Dates: start: 2011

REACTIONS (5)
  - Neutropenia [Recovered/Resolved]
  - Pyrexia [Recovered/Resolved]
  - Migraine [Not Recovered/Not Resolved]
  - Lymphadenopathy [Not Recovered/Not Resolved]
  - Photophobia [Unknown]
